FAERS Safety Report 15081985 (Version 1)
Quarter: 2018Q2

REPORT INFORMATION
  Report Type: Spontaneous
  Country: NZ (occurrence: NZ)
  Receive Date: 20180628
  Receipt Date: 20180628
  Transmission Date: 20180711
  Serious: Yes (Hospitalization, Other)
  Sender: FDA-Public Use
  Company Number: NZ-TEVA-2018-NZ-913666

PATIENT
  Age: 30 Year
  Sex: Female

DRUGS (5)
  1. PROCHLORPERAZINE. [Suspect]
     Active Substance: PROCHLORPERAZINE
     Indication: HYPEREMESIS GRAVIDARUM
     Route: 054
  2. HYOSCINE [Suspect]
     Active Substance: SCOPOLAMINE
     Indication: HYPEREMESIS GRAVIDARUM
     Route: 062
  3. METOCLOPRAMIDE. [Suspect]
     Active Substance: METOCLOPRAMIDE
     Indication: HYPEREMESIS GRAVIDARUM
     Route: 048
  4. ONDANSETRON [Suspect]
     Active Substance: ONDANSETRON
     Indication: HYPEREMESIS GRAVIDARUM
     Dosage: LATER CONTINUED FOR PERSISTENT MORNING SICKNESS
     Route: 048
  5. METHYLPREDNISOLONE. [Suspect]
     Active Substance: METHYLPREDNISOLONE
     Indication: HYPEREMESIS GRAVIDARUM
     Dosage: 16 MG THREE TIMES A DAY
     Route: 042

REACTIONS (5)
  - Normal newborn [Recovered/Resolved]
  - Foetal distress syndrome [Unknown]
  - Maternal exposure during pregnancy [Recovered/Resolved]
  - Weight decreased [Unknown]
  - Hyperemesis gravidarum [Unknown]
